FAERS Safety Report 18017298 (Version 2)
Quarter: 2021Q1

REPORT INFORMATION
  Report Type: Other
  Country: IT (occurrence: IT)
  Receive Date: 20200713
  Receipt Date: 20210312
  Transmission Date: 20210419
  Serious: Yes (Death)
  Sender: FDA-Public Use
  Company Number: IT-ROCHE-2639565

PATIENT

DRUGS (6)
  1. HYDROXYCHLOROQUINE [Concomitant]
     Active Substance: HYDROXYCHLOROQUINE
  2. COBICISTAT [Concomitant]
     Active Substance: COBICISTAT
  3. LOPINAVIR;RITONAVIR [Concomitant]
     Active Substance: LOPINAVIR\RITONAVIR
  4. TOCILIZUMAB. [Suspect]
     Active Substance: TOCILIZUMAB
     Indication: COVID-19 PNEUMONIA
     Route: 058
  5. AZITHROMYCIN ANHYDROUS. [Concomitant]
     Active Substance: AZITHROMYCIN ANHYDROUS
  6. DARUNAVIR [Concomitant]
     Active Substance: DARUNAVIR

REACTIONS (3)
  - Hepatic failure [Fatal]
  - Off label use [Unknown]
  - Herpes simplex reactivation [Unknown]
